FAERS Safety Report 13133210 (Version 4)
Quarter: 2018Q1

REPORT INFORMATION
  Report Type: Report from Study
  Country: NL (occurrence: NL)
  Receive Date: 20170120
  Receipt Date: 20180213
  Transmission Date: 20180508
  Serious: Yes (Hospitalization, Other)
  Sender: FDA-Public Use
  Company Number: PHHY2014NL060740

PATIENT
  Age: 47 Year
  Sex: Female

DRUGS (9)
  1. TRAMADOL. [Concomitant]
     Active Substance: TRAMADOL
     Indication: PAIN IN EXTREMITY
     Dosage: 50 MG, QOD
     Route: 065
     Dates: start: 20140507
  2. PANTOPRAZOL [Concomitant]
     Active Substance: PANTOPRAZOLE SODIUM
     Indication: ABDOMINAL DISCOMFORT
     Dosage: 20 MG, QD
     Route: 065
     Dates: start: 20140430
  3. VOLCOLON [Concomitant]
     Indication: BOWEL MOVEMENT IRREGULARITY
     Dosage: UNK
     Route: 065
     Dates: start: 20140430
  4. LYRICA [Concomitant]
     Active Substance: PREGABALIN
     Indication: PAIN IN EXTREMITY
     Route: 065
     Dates: start: 20130211
  5. MIRABEGRON [Concomitant]
     Active Substance: MIRABEGRON
     Indication: INCONTINENCE
     Dosage: 50 MG, QD
     Route: 065
     Dates: start: 20140507
  6. MIRABEGRON [Concomitant]
     Active Substance: MIRABEGRON
     Indication: URINARY INCONTINENCE
  7. TOVIAZ [Concomitant]
     Active Substance: FESOTERODINE FUMARATE
     Indication: INCONTINENCE
     Dosage: UNK
     Route: 065
     Dates: start: 20140430
  8. GILENYA [Suspect]
     Active Substance: FINGOLIMOD HYDROCHLORIDE
     Indication: MULTIPLE SCLEROSIS
     Dosage: 0.5 MG, QD
     Route: 048
     Dates: start: 20140514
  9. PREGABALIN. [Concomitant]
     Active Substance: PREGABALIN
     Indication: PAIN
     Dosage: 225 MG, QOD
     Route: 065
     Dates: start: 2013

REACTIONS (11)
  - Dizziness [Recovered/Resolved]
  - High density lipoprotein increased [Unknown]
  - Gamma-glutamyltransferase increased [Not Recovered/Not Resolved]
  - Atrioventricular block second degree [Recovered/Resolved]
  - Heart rate decreased [Unknown]
  - Fatigue [Recovered/Resolved]
  - White blood cell count decreased [Recovered/Resolved]
  - Hypercholesterolaemia [Unknown]
  - Atrioventricular block first degree [Unknown]
  - Angina pectoris [Recovered/Resolved]
  - Pain [Unknown]

NARRATIVE: CASE EVENT DATE: 20140514
